FAERS Safety Report 22183533 (Version 1)
Quarter: 2023Q2

REPORT INFORMATION
  Report Type: Report from Study
  Country: US (occurrence: US)
  Receive Date: 20230406
  Receipt Date: 20230406
  Transmission Date: 20230722
  Serious: Yes (Other)
  Sender: FDA-Public Use
  Company Number: US-002147023-NVSC2023US077595

PATIENT
  Sex: Female

DRUGS (1)
  1. PREDNISONE [Suspect]
     Active Substance: PREDNISONE
     Indication: Systemic lupus erythematosus
     Dosage: UNK
     Route: 065

REACTIONS (24)
  - Lupus nephritis [Unknown]
  - Systemic lupus erythematosus [Unknown]
  - Cone-rod dystrophy [Unknown]
  - Blindness [Unknown]
  - Arthralgia [Unknown]
  - Joint swelling [Unknown]
  - Vomiting [Unknown]
  - Alopecia [Unknown]
  - Drug hypersensitivity [Unknown]
  - Pain [Unknown]
  - Fatigue [Unknown]
  - Joint lock [Unknown]
  - Muscle fatigue [Unknown]
  - Tremor [Unknown]
  - Memory impairment [Unknown]
  - Swelling [Unknown]
  - Brain fog [Unknown]
  - Infertility [Unknown]
  - Butterfly rash [Unknown]
  - Depression [Unknown]
  - Weight increased [Unknown]
  - Drug resistance [Unknown]
  - Disease progression [Unknown]
  - Drug ineffective [Unknown]
